FAERS Safety Report 9015944 (Version 1)
Quarter: 2013Q1

REPORT INFORMATION
  Report Type: Spontaneous
  Country: US (occurrence: US)
  Receive Date: 20130116
  Receipt Date: 20130116
  Transmission Date: 20140127
  Serious: No
  Sender: FDA-Public Use
  Company Number: US-009507513-1301USA006375

PATIENT
  Age: 70 Year
  Sex: Female

DRUGS (3)
  1. VICTRELIS [Suspect]
     Indication: HEPATITIS C
     Dosage: 800 MG, TID
     Route: 048
  2. RIBAVIRIN [Concomitant]
  3. INTERFERON (UNSPECIFIED) [Concomitant]

REACTIONS (2)
  - Drug ineffective [Unknown]
  - Anaemia [Unknown]
